FAERS Safety Report 5496626-7 (Version None)
Quarter: 2007Q4

REPORT INFORMATION
  Report Type: 
  Country: None (occurrence: None)
  Receive Date: 20071025
  Receipt Date: 20070626
  Transmission Date: 20080405
  Serious: No
  Sender: FDA-Public Use
  Company Number: A0660258A

PATIENT
  Age: 89 Year
  Sex: Female

DRUGS (7)
  1. ADVAIR DISKUS 100/50 [Suspect]
     Indication: ASTHMA
     Dosage: 1PUFF TWICE PER DAY
     Route: 055
     Dates: start: 20070416
  2. VENTOLIN [Concomitant]
  3. ALLEGRA D 24 HOUR [Concomitant]
  4. FOSAMAX [Concomitant]
  5. XALATAN [Concomitant]
  6. NAMENDA [Concomitant]
  7. ASPIRIN [Concomitant]

REACTIONS (2)
  - DRUG INEFFECTIVE [None]
  - PHARMACEUTICAL PRODUCT COMPLAINT [None]
